FAERS Safety Report 5737980-8 (Version None)
Quarter: 2008Q2

REPORT INFORMATION
  Report Type: 
  Country: None (occurrence: None)
  Receive Date: 20080512
  Receipt Date: 20080512
  Transmission Date: 20081010
  Serious: Yes (Hospitalization)
  Sender: FDA-Public Use
  Company Number: None

PATIENT
  Sex: Female
  Weight: 53.07 kg

DRUGS (26)
  1. CARBOPLATIN [Suspect]
     Dosage: 560.4 MG
  2. TAXOL [Suspect]
     Dosage: 274.75 MG
  3. ACETAMINOPHEN [Concomitant]
  4. CEFEPIME [Concomitant]
  5. DEXTROSE [Concomitant]
  6. DIATRIZOATE MEGLUMINE [Concomitant]
  7. FENTANYL CITRATE [Concomitant]
  8. FILGRASTIM [Concomitant]
  9. FLUCONAZOLE [Concomitant]
  10. HEPARIN [Concomitant]
  11. IBUPROFEN [Concomitant]
  12. INSULIN ASPART [Concomitant]
  13. MAGNESIUM SULFATE [Concomitant]
  14. SODIUM CHLORIDE [Concomitant]
  15. ONDANSETRON [Concomitant]
  16. PCA HYDROMORPHONE [Concomitant]
  17. PIPERACILLIN AND TAZOBACTAM [Concomitant]
  18. POTASSIUM CHLORIDE [Concomitant]
  19. PROMETHAZINE [Concomitant]
  20. RANITIDINE [Concomitant]
  21. TISSUE PLASMINOGEN ACTIVATOR [Concomitant]
  22. VANCOMYCIN [Concomitant]
  23. CALCIUM GLUCONATE [Concomitant]
  24. DIPHENHYDRAMINE HCL [Concomitant]
  25. METRONIDAZOLE HCL [Concomitant]
  26. MIRTAZAPINE [Concomitant]

REACTIONS (4)
  - ABDOMINAL PAIN [None]
  - INCISION SITE INFECTION [None]
  - WOUND INFECTION PSEUDOMONAS [None]
  - WOUND INFECTION STAPHYLOCOCCAL [None]
